FAERS Safety Report 6162636-X (Version None)
Quarter: 2009Q2

REPORT INFORMATION
  Report Type: 
  Country: None (occurrence: None)
  Receive Date: 20090421
  Receipt Date: 20080219
  Transmission Date: 20091009
  Serious: No
  Sender: FDA-Public Use
  Company Number: US-ASTRAZENECA-2008UW03440

PATIENT
  Age: 60 Year
  Sex: Male

DRUGS (2)
  1. CASODEX [Suspect]
     Indication: PROSTATE CANCER
     Dates: start: 20070501, end: 20071101
  2. LUPRON [Concomitant]

REACTIONS (5)
  - ANAEMIA [None]
  - BLOOD SODIUM DECREASED [None]
  - PLATELET COUNT DECREASED [None]
  - THERAPEUTIC RESPONSE UNEXPECTED [None]
  - WHITE BLOOD CELL COUNT DECREASED [None]
